FAERS Safety Report 13352837 (Version 2)
Quarter: 2017Q2

REPORT INFORMATION
  Report Type: Spontaneous
  Country: IT (occurrence: IT)
  Receive Date: 20170320
  Receipt Date: 20170407
  Transmission Date: 20170830
  Serious: Yes (Other)
  Sender: FDA-Public Use
  Company Number: IT-BAXTER-2017BAX012143

PATIENT
  Age: 48 Year

DRUGS (3)
  1. METRONIDAZOLO BAXTER S.P.A. [Suspect]
     Active Substance: METRONIDAZOLE
     Indication: WOUND INFECTION
     Route: 042
     Dates: start: 20170307
  2. LEVOFLOXACIN. [Suspect]
     Active Substance: LEVOFLOXACIN
     Indication: OPEN FRACTURE
     Route: 048
     Dates: start: 20170307
  3. CEFAMEZIN [Suspect]
     Active Substance: CEFAZOLIN
     Indication: WOUND INFECTION
     Route: 042
     Dates: start: 20170307, end: 20170308

REACTIONS (1)
  - Rash [Recovered/Resolved]

NARRATIVE: CASE EVENT DATE: 20170307
